FAERS Safety Report 6150106-4 (Version None)
Quarter: 2009Q2

REPORT INFORMATION
  Report Type: 
  Country: None (occurrence: None)
  Receive Date: 20090409
  Receipt Date: 20090331
  Transmission Date: 20091009
  Serious: Yes (Death, Hospitalization)
  Sender: FDA-Public Use
  Company Number: GB-AMGEN-UK269455

PATIENT
  Sex: Female

DRUGS (35)
  1. PANITUMUMAB [Suspect]
     Indication: COLORECTAL CANCER
     Route: 042
     Dates: start: 20080109, end: 20080227
  2. FLUOROURACIL [Suspect]
     Route: 065
  3. OXALIPLATIN [Suspect]
     Route: 065
  4. LEUCOVORIN CALCIUM [Concomitant]
     Route: 065
  5. SUCRALFATE [Concomitant]
     Route: 048
     Dates: start: 20080227, end: 20080311
  6. POTASSIUM CHLORIDE [Concomitant]
     Route: 048
     Dates: start: 20080227, end: 20080302
  7. POTASSIUM CHLORIDE [Concomitant]
     Route: 042
     Dates: start: 20080228, end: 20080310
  8. AUGMENTIN '125' [Concomitant]
     Route: 042
     Dates: start: 20080308, end: 20080310
  9. CHLORHEXIDINE GLUCONATE [Concomitant]
     Route: 048
     Dates: start: 20080309, end: 20080311
  10. NYSTATIN [Concomitant]
     Route: 048
     Dates: start: 20080309, end: 20080310
  11. SODIUM CHLORIDE [Concomitant]
     Route: 042
     Dates: start: 20080228, end: 20080309
  12. MAGNESIUM SULFATE [Concomitant]
     Route: 042
     Dates: start: 20080309, end: 20080309
  13. DEXAMETHASONE 4MG TAB [Concomitant]
     Route: 048
     Dates: start: 20080109, end: 20080229
  14. METOCLOPRAMIDE [Concomitant]
     Route: 048
     Dates: start: 20080109, end: 20080311
  15. LOPERAMIDE HCL [Concomitant]
     Route: 048
     Dates: start: 20080112, end: 20080311
  16. POTASSIUM CHLORIDE [Concomitant]
     Route: 048
     Dates: start: 20080123, end: 20080210
  17. TETRACYCLINE [Concomitant]
     Route: 048
     Dates: start: 20080206, end: 20080308
  18. DERMOL [Concomitant]
     Route: 061
     Dates: start: 20080206, end: 20080308
  19. DIPROBASE [Concomitant]
     Route: 061
     Dates: start: 20080309, end: 20080311
  20. PYRIDOXINE [Concomitant]
     Route: 048
     Dates: start: 20080308, end: 20080311
  21. ACYCLOVIR [Concomitant]
     Route: 048
     Dates: start: 20080308, end: 20080311
  22. VITAMIN K [Concomitant]
     Route: 042
     Dates: start: 20080308, end: 20080309
  23. PARACETAMOL [Concomitant]
     Route: 048
     Dates: start: 20080107, end: 20080311
  24. CODEINE PHOSPHATE [Concomitant]
     Route: 048
     Dates: start: 20080311, end: 20080312
  25. BUSCOPAN [Concomitant]
     Route: 048
     Dates: start: 20080311, end: 20080312
  26. ZOPICLONE [Concomitant]
     Route: 048
     Dates: start: 20080311, end: 20080312
  27. LORAZEPAM [Concomitant]
     Route: 048
     Dates: start: 20080311, end: 20080311
  28. MORPHINE SULFATE [Concomitant]
     Route: 058
     Dates: start: 20080312, end: 20080312
  29. HALOPERIDOL [Concomitant]
     Route: 058
     Dates: start: 20080312, end: 20080312
  30. NORVASC [Concomitant]
     Route: 048
     Dates: start: 19980101, end: 20080308
  31. VALSARTAN [Concomitant]
     Route: 048
     Dates: start: 19980101, end: 20080308
  32. DOXAZOSIN MESYLATE [Concomitant]
     Route: 048
     Dates: start: 19980101, end: 20080308
  33. ONDANSETRON [Concomitant]
     Route: 042
     Dates: start: 20080109, end: 20080308
  34. DEXAMETHASONE 4MG TAB [Concomitant]
     Route: 042
     Dates: start: 20080109, end: 20080227
  35. METOCLOPRAMIDE [Concomitant]
     Route: 042
     Dates: start: 20080109, end: 20080228

REACTIONS (6)
  - COLORECTAL CANCER METASTATIC [None]
  - DEHYDRATION [None]
  - DIARRHOEA [None]
  - HYPOKALAEMIA [None]
  - INTESTINAL ISCHAEMIA [None]
  - SEPSIS [None]
